FAERS Safety Report 7428618-2 (Version None)
Quarter: 2011Q2

REPORT INFORMATION
  Report Type: 
  Country: None (occurrence: None)
  Receive Date: 20110421
  Receipt Date: 20110413
  Transmission Date: 20111010
  Serious: Yes (Other)
  Sender: FDA-Public Use
  Company Number: US-ASTRAZENECA-2009UW12564

PATIENT
  Age: 17942 Day
  Weight: 81.6 kg

DRUGS (7)
  1. CYMBALTA [Concomitant]
     Dates: start: 20061208
  2. SEROQUEL [Suspect]
     Route: 048
     Dates: start: 20061110
  3. HYOSCYAMINE SUL [Concomitant]
     Dates: start: 20070331
  4. SEROQUEL [Suspect]
     Indication: INSOMNIA
     Route: 048
     Dates: start: 20060101
  5. CYCLOBENZAPRINE [Concomitant]
     Dates: start: 20070511
  6. AMITRIPTYLINE HCL [Concomitant]
     Dates: start: 20070228
  7. NEURONTIN [Concomitant]
     Dates: start: 20081010

REACTIONS (2)
  - DIABETES MELLITUS [None]
  - NEUROPATHY PERIPHERAL [None]
